FAERS Safety Report 9792120 (Version 2)
Quarter: 2014Q1

REPORT INFORMATION
  Report Type: Spontaneous
  Country: US (occurrence: US)
  Receive Date: 20140102
  Receipt Date: 20140212
  Transmission Date: 20141002
  Serious: Yes (Other)
  Sender: FDA-Public Use
  Company Number: US-B.I. PHARMACEUTICALS,INC./RIDGEFIELD-2013-BI-43570BP

PATIENT
  Age: 66 Year
  Sex: Male
  Weight: 80.29 kg

DRUGS (5)
  1. PRADAXA [Suspect]
     Indication: ATRIAL FIBRILLATION
     Dosage: 300 MG
     Route: 048
     Dates: start: 20131108
  2. LOSARTAN [Concomitant]
     Indication: HYPERTENSION
     Dates: start: 20130930
  3. SYNTHROID [Concomitant]
     Indication: HYPOTHYROIDISM
     Dates: start: 20121129
  4. METOPROLOL ER [Concomitant]
     Indication: HYPERTENSION
     Dates: start: 20130926
  5. METOPROLOL ER [Concomitant]
     Indication: ATRIAL FIBRILLATION

REACTIONS (1)
  - Sleep apnoea syndrome [Not Recovered/Not Resolved]
